FAERS Safety Report 5704251-5 (Version None)
Quarter: 2008Q2

REPORT INFORMATION
  Report Type: 
  Country: None (occurrence: None)
  Receive Date: 20080409
  Receipt Date: 20080404
  Transmission Date: 20081010
  Serious: Yes (Death, Other)
  Sender: FDA-Public Use
  Company Number: 2008-00175

PATIENT
  Age: 42 Year
  Sex: Male

DRUGS (2)
  1. VELCADE [Suspect]
     Indication: MULTIPLE MYELOMA
     Dosage: 1.30 MG/M2, INTRAVENOUS
     Route: 042
     Dates: start: 20071225, end: 20080208
  2. DECADRON(DEXAMETHASONE) TABLET [Suspect]
     Indication: MULTIPLE MYELOMA
     Dosage: 20.00 MG, ORAL
     Route: 048
     Dates: start: 20071225

REACTIONS (5)
  - CONSTIPATION [None]
  - CYTOMEGALOVIRUS INFECTION [None]
  - DIFFUSE PANBRONCHIOLITIS [None]
  - DISEASE PROGRESSION [None]
  - ILEUS [None]
